FAERS Safety Report 22399185 (Version 1)
Quarter: 2023Q2

REPORT INFORMATION
  Report Type: Spontaneous
  Country: US (occurrence: US)
  Receive Date: 20230602
  Receipt Date: 20230602
  Transmission Date: 20230721
  Serious: Yes (Other)
  Sender: FDA-Public Use
  Company Number: US-ELI_LILLY_AND_COMPANY-US202306000210

PATIENT

DRUGS (1)
  1. MOUNJARO [Suspect]
     Active Substance: TIRZEPATIDE
     Indication: Diabetic retinopathy
     Dosage: UNK UNK, UNKNOWN
     Route: 065

REACTIONS (2)
  - Vitreous haemorrhage [Unknown]
  - Off label use [Unknown]
